FAERS Safety Report 25095318 (Version 1)
Quarter: 2025Q1

REPORT INFORMATION
  Report Type: Report from Study
  Country: US (occurrence: US)
  Receive Date: 20250319
  Receipt Date: 20250319
  Transmission Date: 20250408
  Serious: Yes (Other)
  Sender: MYLAN
  Company Number: US-MYLANLABS-2025M1023094

PATIENT
  Age: 60 Year
  Sex: Female

DRUGS (5)
  1. CETIRIZINE HYDROCHLORIDE [Suspect]
     Active Substance: CETIRIZINE HYDROCHLORIDE
     Indication: Allergy prophylaxis
  2. CARBOPLATIN [Concomitant]
     Active Substance: CARBOPLATIN
     Indication: Ovarian cancer
  3. CARBOPLATIN [Concomitant]
     Active Substance: CARBOPLATIN
     Indication: Immune tolerance induction
  4. RANITIDINE [Concomitant]
     Active Substance: RANITIDINE
     Indication: Gastritis prophylaxis
  5. METHYLPREDNISOLONE [Concomitant]
     Active Substance: METHYLPREDNISOLONE
     Indication: Angioedema

REACTIONS (1)
  - Drug ineffective [Unknown]
